FAERS Safety Report 8759167 (Version 3)
Quarter: 2013Q2

REPORT INFORMATION
  Report Type: Spontaneous
  Country: US (occurrence: US)
  Receive Date: 20120829
  Receipt Date: 20130419
  Transmission Date: 20140414
  Serious: Yes (Hospitalization)
  Sender: FDA-Public Use
  Company Number: US-B.I. PHARMACEUTICALS,INC./RIDGEFIELD-2012-BP-20476BP

PATIENT
  Age: 78 Year
  Sex: Female
  Weight: 72.57 kg

DRUGS (11)
  1. PRADAXA [Suspect]
     Indication: ATRIAL FIBRILLATION
     Dosage: 300 MG
     Route: 048
     Dates: start: 20111129, end: 20111228
  2. MULTAQ [Concomitant]
     Dates: end: 2011
  3. FUROSEMIDE [Concomitant]
     Dates: end: 2011
  4. LISINOPRIL [Concomitant]
     Dates: end: 2011
  5. SIMVASTATIN [Concomitant]
     Dates: start: 2000
  6. SERTALIN [Concomitant]
     Dates: start: 2000
  7. LEVOTHYROXINE [Concomitant]
     Dates: start: 2011
  8. HYDROCHLOROTHIAZIDE [Concomitant]
     Dates: start: 2000
  9. AMIODARONE [Concomitant]
     Dates: start: 2011
  10. DIOVAN [Concomitant]
     Dates: end: 2011
  11. POTASSIUM CHLORIDE 10% [Concomitant]
     Route: 048
     Dates: start: 2011

REACTIONS (1)
  - Gastrointestinal haemorrhage [Recovered/Resolved]
